FAERS Safety Report 10144460 (Version 2)
Quarter: 2014Q2

REPORT INFORMATION
  Report Type: Spontaneous
  Country: US (occurrence: US)
  Receive Date: 20140430
  Receipt Date: 20140509
  Transmission Date: 20141212
  Serious: Yes (Hospitalization)
  Sender: FDA-Public Use
  Company Number: US-LUNDBECK-DKLU1098955

PATIENT
  Age: 2 Year
  Sex: Female
  Weight: 9 kg

DRUGS (2)
  1. SABRIL (FOR ORAL SOLUTION) [Suspect]
     Indication: INFANTILE SPASMS
     Route: 048
     Dates: start: 20120808
  2. SABRIL (FOR ORAL SOLUTION) [Suspect]
     Route: 048

REACTIONS (3)
  - Hypernatraemia [Recovered/Resolved]
  - Hypovolaemia [Recovered/Resolved]
  - Drug dose omission [Unknown]
